FAERS Safety Report 5451929-7 (Version None)
Quarter: 2007Q3

REPORT INFORMATION
  Report Type: 
  Country: None (occurrence: None)
  Receive Date: 20070912
  Receipt Date: 20070831
  Transmission Date: 20080115
  Serious: Yes (Other)
  Sender: FDA-Public Use
  Company Number: 2007SP017612

PATIENT
  Age: 67 Year
  Sex: Female
  Weight: 60 kg

DRUGS (2)
  1. VIRAFERONPEG [Suspect]
     Indication: HEPATITIS C
     Dosage: 1.5 MG/KG;QW;SC
     Route: 058
     Dates: start: 20060925, end: 20070723
  2. REBETOL [Suspect]
     Indication: HEPATITIS C
     Dosage: 800 MG;QD;PO
     Route: 048
     Dates: start: 20060925, end: 20070723

REACTIONS (4)
  - HYPOACUSIS [None]
  - OTOTOXICITY [None]
  - TINNITUS [None]
  - VERTIGO [None]
